FAERS Safety Report 10613231 (Version 1)
Quarter: 2014Q4

REPORT INFORMATION
  Report Type: Spontaneous
  Country: GB (occurrence: GB)
  Receive Date: 20141128
  Receipt Date: 20141128
  Transmission Date: 20150529
  Serious: Yes (Hospitalization)
  Sender: FDA-Public Use
  Company Number: GB-BRISTOL-MYERS SQUIBB COMPANY-21640271

PATIENT
  Age: 76 Year
  Sex: Male
  Weight: 80 kg

DRUGS (13)
  1. OMEPRAZOLE. [Concomitant]
     Active Substance: OMEPRAZOLE
  2. METFORMIN HCL [Suspect]
     Active Substance: METFORMIN HYDROCHLORIDE
     Dosage: 2 G/DAY
     Route: 048
     Dates: end: 20141113
  3. SITAGLIPTIN PHOSPHATE [Concomitant]
     Active Substance: SITAGLIPTIN PHOSPHATE
  4. ATENOLOL. [Concomitant]
     Active Substance: ATENOLOL
  5. NIFEDIPINE. [Concomitant]
     Active Substance: NIFEDIPINE
  6. CALCICHEW [Concomitant]
     Active Substance: CALCIUM CARBONATE
  7. PREDNISOLONE. [Concomitant]
     Active Substance: PREDNISOLONE
  8. RAMIPRIL. [Concomitant]
     Active Substance: RAMIPRIL
  9. ALENDRONIC ACID [Concomitant]
     Active Substance: ALENDRONIC ACID
  10. METHOTREXATE [Concomitant]
     Active Substance: METHOTREXATE
  11. TAMSULOSIN HCL [Concomitant]
     Active Substance: TAMSULOSIN
  12. ASPIRIN. [Concomitant]
     Active Substance: ASPIRIN
  13. FOLIC ACID. [Concomitant]
     Active Substance: FOLIC ACID

REACTIONS (7)
  - Lactic acidosis [Recovering/Resolving]
  - Electrolyte imbalance [Recovering/Resolving]
  - Diarrhoea [Recovering/Resolving]
  - Acute kidney injury [Recovering/Resolving]
  - Dehydration [Recovering/Resolving]
  - Vomiting [Recovering/Resolving]
  - Abdominal pain [Recovering/Resolving]

NARRATIVE: CASE EVENT DATE: 20141111
